FAERS Safety Report 9310373 (Version 1)
Quarter: 2013Q2

REPORT INFORMATION
  Report Type: Spontaneous
  Country: BE (occurrence: BE)
  Receive Date: 20130527
  Receipt Date: 20130527
  Transmission Date: 20140414
  Serious: Yes (Other)
  Sender: FDA-Public Use
  Company Number: BE-BRISTOL-MYERS SQUIBB COMPANY-18929976

PATIENT
  Age: 76 Year
  Sex: Male

DRUGS (5)
  1. GLUCOPHAGE [Suspect]
     Route: 048
  2. ZYLORIC [Concomitant]
  3. CRESTOR [Concomitant]
  4. LIPITOR [Concomitant]
  5. L-THYROXINE [Concomitant]

REACTIONS (1)
  - Atrial fibrillation [Unknown]
